FAERS Safety Report 17535576 (Version 1)
Quarter: 2020Q1

REPORT INFORMATION
  Report Type: Spontaneous
  Country: US (occurrence: US)
  Receive Date: 20200313
  Receipt Date: 20200313
  Transmission Date: 20200409
  Serious: Yes (Other)
  Sender: FDA-Public Use
  Company Number: US-AMGEN INC.-USASP2020039693

PATIENT

DRUGS (1)
  1. AIMOVIG [Suspect]
     Active Substance: ERENUMAB-AOOE
     Indication: PRODUCT USED FOR UNKNOWN INDICATION
     Dosage: UNK
     Route: 065

REACTIONS (17)
  - Aphonia [Unknown]
  - Dyspepsia [Unknown]
  - Bedridden [Unknown]
  - Abdominal pain upper [Unknown]
  - Pharyngeal swelling [Unknown]
  - Fatigue [Unknown]
  - Dyspnoea [Unknown]
  - Anxiety [Unknown]
  - Mouth swelling [Unknown]
  - Ageusia [Unknown]
  - Haematology test abnormal [Unknown]
  - Lethargy [Unknown]
  - C-reactive protein increased [Unknown]
  - Asthenia [Unknown]
  - Bowel movement irregularity [Unknown]
  - Depression [Unknown]
  - Blood sodium decreased [Unknown]
